FAERS Safety Report 6101496-X (Version None)
Quarter: 2009Q1

REPORT INFORMATION
  Report Type: 
  Country: None (occurrence: None)
  Receive Date: 20090304
  Receipt Date: 20090224
  Transmission Date: 20090719
  Serious: Yes (Hospitalization)
  Sender: FDA-Public Use
  Company Number: US-BAYER-200840146NA

PATIENT
  Age: 20 Year
  Sex: Female
  Weight: 90 kg

DRUGS (1)
  1. MIRENA [Suspect]
     Indication: CONTRACEPTION
     Route: 015
     Dates: start: 20080418

REACTIONS (10)
  - ABDOMINAL PAIN [None]
  - DYSURIA [None]
  - FLUID RETENTION [None]
  - HYPERSENSITIVITY [None]
  - IUCD COMPLICATION [None]
  - OVARIAN CYST RUPTURED [None]
  - PHARYNGEAL OEDEMA [None]
  - POST PROCEDURAL HAEMORRHAGE [None]
  - RASH [None]
  - VULVOVAGINAL PAIN [None]
